FAERS Safety Report 9398751 (Version 1)
Quarter: 2013Q3

REPORT INFORMATION
  Report Type: Spontaneous
  Country: CN (occurrence: CN)
  Receive Date: 20130712
  Receipt Date: 20130712
  Transmission Date: 20140515
  Serious: Yes (Other)
  Sender: FDA-Public Use
  Company Number: CN-BAXTER-2013BAX026638

PATIENT
  Age: 8 Month
  Sex: Male
  Weight: 8 kg

DRUGS (2)
  1. 5% GLUCOSE INJECTION [Suspect]
     Indication: BRONCHITIS
     Route: 041
     Dates: start: 20120816, end: 20120818
  2. POTASSIUM SODIUM DEHYDROANDROAN DROGRAPHOLIDE SUCCINATE [Suspect]
     Indication: BRONCHITIS
     Dates: start: 20120816, end: 20120818

REACTIONS (3)
  - Chills [Recovered/Resolved]
  - Hyperpyrexia [Recovered/Resolved]
  - Dysphoria [Recovered/Resolved]
